FAERS Safety Report 14855632 (Version 1)
Quarter: 2018Q2

REPORT INFORMATION
  Report Type: Spontaneous
  Country: US (occurrence: US)
  Receive Date: 20180507
  Receipt Date: 20180507
  Transmission Date: 20180711
  Serious: No
  Sender: FDA-Public Use
  Company Number: US-009507513-1805USA001861

PATIENT
  Age: 16 Year
  Sex: Female
  Weight: 45.35 kg

DRUGS (1)
  1. NEXPLANON [Suspect]
     Active Substance: ETONOGESTREL
     Indication: CONTRACEPTION
     Dosage: EVERY 4 YEARS
     Route: 059
     Dates: start: 20180430

REACTIONS (3)
  - Incorrect drug administration duration [Unknown]
  - Pain in extremity [Unknown]
  - Blister [Unknown]

NARRATIVE: CASE EVENT DATE: 20180502
